FAERS Safety Report 25346640 (Version 1)
Quarter: 2025Q2

REPORT INFORMATION
  Report Type: Report from Study
  Country: US (occurrence: US)
  Receive Date: 20250522
  Receipt Date: 20250522
  Transmission Date: 20250716
  Serious: Yes (Other)
  Sender: MYLAN
  Company Number: US-MYLANLABS-2025M1041280

PATIENT
  Sex: Female
  Weight: 78.01 kg

DRUGS (8)
  1. ZIPRASIDONE [Suspect]
     Active Substance: ZIPRASIDONE
     Indication: Schizophrenia
     Dosage: 40 MILLIGRAM, AM (ONE TIME A DAY IN THE MORNING)
     Dates: start: 2021
  2. ZIPRASIDONE [Suspect]
     Active Substance: ZIPRASIDONE
     Dosage: 40 MILLIGRAM, AM (ONE TIME A DAY IN THE MORNING)
     Dates: start: 2021
  3. ZIPRASIDONE [Suspect]
     Active Substance: ZIPRASIDONE
     Dosage: 40 MILLIGRAM, AM (ONE TIME A DAY IN THE MORNING)
     Route: 048
     Dates: start: 2021
  4. ZIPRASIDONE [Suspect]
     Active Substance: ZIPRASIDONE
     Dosage: 40 MILLIGRAM, AM (ONE TIME A DAY IN THE MORNING)
     Route: 048
     Dates: start: 2021
  5. ZIPRASIDONE [Suspect]
     Active Substance: ZIPRASIDONE
  6. ZIPRASIDONE [Suspect]
     Active Substance: ZIPRASIDONE
  7. ZIPRASIDONE [Suspect]
     Active Substance: ZIPRASIDONE
     Route: 048
  8. ZIPRASIDONE [Suspect]
     Active Substance: ZIPRASIDONE
     Route: 048

REACTIONS (5)
  - Suicidal ideation [Recovered/Resolved]
  - Akathisia [Recovered/Resolved]
  - Loss of personal independence in daily activities [Recovered/Resolved]
  - Drug hypersensitivity [Recovered/Resolved]
  - Off label use [Unknown]

NARRATIVE: CASE EVENT DATE: 20210101
